FAERS Safety Report 6270879-X (Version None)
Quarter: 2009Q3

REPORT INFORMATION
  Report Type: 
  Country: None (occurrence: None)
  Receive Date: 20090715
  Receipt Date: 20090702
  Transmission Date: 20100115
  Serious: Yes (Hospitalization)
  Sender: FDA-Public Use
  Company Number: 237397K09USA

PATIENT
  Age: 42 Year
  Sex: Female
  Weight: 66 kg

DRUGS (5)
  1. REBIF [Suspect]
     Indication: MULTIPLE SCLEROSIS
     Dosage: 44 MCG, 3 IN WEEKS, SUBCUTANEOUS
     Route: 058
     Dates: start: 20080908
  2. KLONOPIN [Concomitant]
  3. EFFEXOR [Concomitant]
  4. LIPITOR [Concomitant]
  5. AMBIEN [Concomitant]

REACTIONS (4)
  - BACTERIAL INFECTION [None]
  - CHILLS [None]
  - PYREXIA [None]
  - TREMOR [None]
